FAERS Safety Report 7820719-X (Version None)
Quarter: 2011Q4

REPORT INFORMATION
  Report Type: 
  Country: None (occurrence: None)
  Receive Date: 20111013
  Receipt Date: 20110927
  Transmission Date: 20120403
  Serious: Yes (Hospitalization)
  Sender: FDA-Public Use
  Company Number: 2011MA014575

PATIENT
  Age: 78 Year
  Sex: Male

DRUGS (1)
  1. CLINDAMYCIN PHOSPHATE [Suspect]
     Indication: DENTAL IMPLANTATION
     Dosage: 150 MG 1X; PO
     Route: 048

REACTIONS (13)
  - THROAT IRRITATION [None]
  - DYSPHONIA [None]
  - PNEUMONIA ASPIRATION [None]
  - DYSPNOEA [None]
  - RESPIRATORY DISTRESS [None]
  - SYNCOPE [None]
  - COUGH [None]
  - TRACHEITIS [None]
  - GASTROINTESTINAL HAEMORRHAGE [None]
  - OROPHARYNGEAL CANCER STAGE UNSPECIFIED [None]
  - OEDEMA MUCOSAL [None]
  - PRODUCT SOLUBILITY ABNORMAL [None]
  - HYPERAEMIA [None]
